FAERS Safety Report 10413542 (Version 1)
Quarter: 2014Q3

REPORT INFORMATION
  Report Type: Spontaneous
  Country: CN (occurrence: CN)
  Receive Date: 20140827
  Receipt Date: 20140827
  Transmission Date: 20150326
  Serious: Yes (Other)
  Sender: FDA-Public Use
  Company Number: CN-PFIZER INC-2014238397

PATIENT
  Age: 11 Year
  Sex: Male
  Weight: 27 kg

DRUGS (3)
  1. METHYLPREDNISOLONE SODIUM SUCCINATE. [Suspect]
     Active Substance: METHYLPREDNISOLONE SODIUM SUCCINATE
     Indication: ANTIINFLAMMATORY THERAPY
     Dosage: 12 MG, 2X/DAY
     Route: 041
     Dates: start: 20140221, end: 20140224
  2. METHYLPREDNISOLONE SODIUM SUCCINATE. [Suspect]
     Active Substance: METHYLPREDNISOLONE SODIUM SUCCINATE
     Indication: SHOCK
  3. GLUCOSE [Concomitant]
     Active Substance: DEXTROSE
     Dosage: 30 ML, 2X/DAY
     Route: 041
     Dates: start: 20140221, end: 20140224

REACTIONS (1)
  - Gastrointestinal haemorrhage [Recovering/Resolving]

NARRATIVE: CASE EVENT DATE: 20140221
